FAERS Safety Report 25257869 (Version 1)
Quarter: 2025Q2

REPORT INFORMATION
  Report Type: Spontaneous
  Country: US (occurrence: None)
  Receive Date: 20250430
  Receipt Date: 20250430
  Transmission Date: 20250716
  Serious: No
  Sender: AXSOME THERAPEUTICS, INC.
  Company Number: US-Axsome Therapeutics, Inc.-AXS202503-000452

PATIENT

DRUGS (1)
  1. AUVELITY [Suspect]
     Active Substance: BUPROPION HYDROCHLORIDE\DEXTROMETHORPHAN HYDROBROMIDE
     Route: 065

REACTIONS (9)
  - Withdrawal syndrome [Unknown]
  - Palpitations [Unknown]
  - Crying [Unknown]
  - Feeling abnormal [Unknown]
  - Tremor [Unknown]
  - Anxiety [Unknown]
  - Fatigue [Unknown]
  - Decreased appetite [Unknown]
  - Myalgia [Unknown]
